FAERS Safety Report 5425844-9 (Version None)
Quarter: 2007Q3

REPORT INFORMATION
  Report Type: 
  Country: None (occurrence: None)
  Receive Date: 20070823
  Receipt Date: 20070815
  Transmission Date: 20080115
  Serious: Yes (Other)
  Sender: FDA-Public Use
  Company Number: CERZ-11850

PATIENT
  Age: 70 Year
  Sex: Female
  Weight: 88 kg

DRUGS (1)
  1. CEREZYME [Suspect]
     Indication: GAUCHER'S DISEASE
     Dosage: 4400 UNITS Q3WKS IV
     Route: 042
     Dates: start: 19970418

REACTIONS (2)
  - BLOOD URIC ACID INCREASED [None]
  - CAROTID ARTERY OCCLUSION [None]
